FAERS Safety Report 4677228-9 (Version None)
Quarter: 2005Q2

REPORT INFORMATION
  Report Type: 
  Country: None (occurrence: None)
  Receive Date: 20050526
  Receipt Date: 20050526
  Transmission Date: 20051028
  Serious: Yes (Life-Threatening)
  Sender: FDA-Public Use
  Company Number: None

PATIENT
  Age: 46 Year
  Sex: Male
  Weight: 76.2043 kg

DRUGS (3)
  1. ERBITUX BRISTOL MYERS SQUIBB IM CLONE SYSTEM [Suspect]
     Indication: COLORECTAL CANCER
     Dosage: 800MG IV (1ST DOSE)
     Route: 042
     Dates: start: 20050525
  2. CAMPTOSAR [Concomitant]
  3. AVASTIN [Concomitant]

REACTIONS (4)
  - FLUSHING [None]
  - NAUSEA [None]
  - PRURITUS [None]
  - SWELLING FACE [None]
